FAERS Safety Report 9029055 (Version 1)
Quarter: 2013Q1

REPORT INFORMATION
  Report Type: Spontaneous
  Country: BE (occurrence: BE)
  Receive Date: 20130122
  Receipt Date: 20130122
  Transmission Date: 20140127
  Serious: Yes (Hospitalization, Other)
  Sender: FDA-Public Use
  Company Number: BE-ROCHE-1180025

PATIENT
  Age: 46 Year
  Sex: Female
  Weight: 49.5 kg

DRUGS (7)
  1. HERCEPTIN [Suspect]
     Indication: BREAST CANCER METASTATIC
     Route: 065
     Dates: start: 200706
  2. TAMOXIFEN [Suspect]
     Indication: BREAST CANCER METASTATIC
     Route: 065
     Dates: start: 201108, end: 201202
  3. XELODA [Suspect]
     Indication: BREAST CANCER METASTATIC
     Route: 065
     Dates: start: 201208
  4. XELODA [Suspect]
     Route: 065
     Dates: start: 201210
  5. LETROZOLE [Suspect]
     Indication: BREAST CANCER METASTATIC
     Route: 065
     Dates: start: 201202, end: 201208
  6. LAPATINIB [Suspect]
     Indication: BREAST CANCER METASTATIC
     Route: 065
     Dates: start: 201208, end: 201210
  7. DOCETAXEL [Suspect]
     Indication: BREAST CANCER METASTATIC
     Route: 065
     Dates: start: 200706

REACTIONS (2)
  - Diarrhoea [Unknown]
  - Disease progression [Unknown]
